FAERS Safety Report 25455213 (Version 1)
Quarter: 2025Q2

REPORT INFORMATION
  Report Type: Spontaneous
  Country: CH (occurrence: CH)
  Receive Date: 20250619
  Receipt Date: 20250619
  Transmission Date: 20250717
  Serious: Yes (Hospitalization, Other)
  Sender: CHEPLAPHARM
  Company Number: None

PATIENT
  Age: 65 Year
  Sex: Male
  Weight: 77 kg

DRUGS (6)
  1. OLANZAPINE [Suspect]
     Active Substance: OLANZAPINE
     Dosage: DAILY DOSE: 7.5 MILLIGRAM
     Dates: start: 20250217
  2. OLANZAPINE [Suspect]
     Active Substance: OLANZAPINE
     Dosage: DAILY DOSE: 15 MILLIGRAM
     Dates: end: 20250216
  3. SERTRALINE [Suspect]
     Active Substance: SERTRALINE HYDROCHLORIDE
     Indication: Major depression
     Dosage: DOSE BEFORE 01/2025 UNKNOWN?DAILY DOSE: 200 MILLIGRAM
     Route: 048
     Dates: start: 202501, end: 20250217
  4. SERTRALINE [Suspect]
     Active Substance: SERTRALINE HYDROCHLORIDE
     Indication: Major depression
     Dosage: DOSE BEFORE 01/2025 UNKNOWN?DAILY DOSE: 1 DOSAGE FORM
     Route: 048
     Dates: end: 202501
  5. VALDOXAN [Concomitant]
     Active Substance: AGOMELATINE
     Indication: Chest discomfort
  6. QUETIAPINE [Concomitant]
     Active Substance: QUETIAPINE

REACTIONS (1)
  - Serotonin syndrome [Recovered/Resolved]

NARRATIVE: CASE EVENT DATE: 20250212
